FAERS Safety Report 4428645-3 (Version None)
Quarter: 2004Q3

REPORT INFORMATION
  Report Type: 
  Country: None (occurrence: None)
  Receive Date: 20040818
  Receipt Date: 20030812
  Transmission Date: 20050211
  Serious: No
  Sender: FDA-Public Use
  Company Number: US-BRISTOL-MYERS SQUIBB COMPANY-12353371

PATIENT
  Age: 25 Year
  Sex: Male
  Weight: 69 kg

DRUGS (3)
  1. TEQUIN [Suspect]
     Indication: INFECTION
     Route: 048
     Dates: start: 20030801, end: 20030807
  2. TEQUIN [Suspect]
     Indication: PULMONARY CONGESTION
     Route: 048
     Dates: start: 20030801, end: 20030807
  3. GLUCOTROL [Concomitant]
     Indication: DIABETES MELLITUS

REACTIONS (2)
  - HYPERGLYCAEMIA [None]
  - WEIGHT DECREASED [None]
